FAERS Safety Report 9001925 (Version 1)
Quarter: 2013Q1

REPORT INFORMATION
  Report Type: Report from Study
  Country: GB (occurrence: CA)
  Receive Date: 20130107
  Receipt Date: 20130107
  Transmission Date: 20140127
  Serious: Yes (Life-Threatening, Hospitalization, Disabling)
  Sender: FDA-Public Use
  Company Number: GB-PFIZER INC-2013000812

PATIENT
  Age: 60 Year
  Sex: Male
  Weight: 108 kg

DRUGS (40)
  1. DOXORUBICIN HCL [Suspect]
     Indication: DIFFUSE LARGE B-CELL LYMPHOMA
     Dosage: 118 MG, EVERY 3 WEEKS
     Route: 042
     Dates: start: 20111205
  2. VINCRISTINE [Suspect]
     Indication: DIFFUSE LARGE B-CELL LYMPHOMA
     Dosage: 2 MG, EVERY 3 WEEKS
     Route: 042
     Dates: start: 20111205
  3. CYCLOPHOSPHAMIDE [Suspect]
     Indication: DIFFUSE LARGE B-CELL LYMPHOMA
     Dosage: 1770 MG, EVERY 3 WEEKS
     Route: 042
     Dates: start: 20111205
  4. PREDNISOLONE [Suspect]
     Indication: DIFFUSE LARGE B-CELL LYMPHOMA
     Dosage: 100 MG, EVERY 3 WEEKS
     Route: 048
     Dates: start: 20111205
  5. OBINUTUZUMAB [Suspect]
     Indication: DIFFUSE LARGE B-CELL LYMPHOMA
     Dosage: 1000 ML, EVERY 3 WEEKS
     Route: 042
     Dates: start: 20111205
  6. OBINUTUZUMAB [Suspect]
     Dosage: 250 ML, UNK
     Dates: start: 20120514
  7. AVAPRO [Concomitant]
     Indication: PRODUCT USED FOR UNKNOWN INDICATION
     Dosage: UNK
     Dates: start: 20111118
  8. AVAPRO [Concomitant]
     Indication: HYPERTENSION
  9. VITAMIN B12 [Concomitant]
     Indication: VITAMIN B12 DEFICIENCY
     Dates: start: 20120326
  10. SULFADIAZINE [Concomitant]
     Indication: BLISTER
     Dates: start: 20120327
  11. KETOROLAC [Concomitant]
     Indication: PAIN
     Dates: start: 20120707, end: 20120725
  12. COLCHICINE [Concomitant]
     Indication: PAIN
     Dosage: UNK
     Dates: start: 20120714, end: 20120714
  13. FENTANYL [Concomitant]
     Indication: PAIN
     Dosage: UNK
     Dates: start: 20120707, end: 20120709
  14. MORPHINE [Concomitant]
     Indication: PAIN
     Dates: start: 20120707, end: 20120725
  15. DOCUSATE SODIUM [Concomitant]
     Indication: CONSTIPATION
     Dosage: UNK
     Dates: start: 20120707, end: 20120725
  16. HEPARIN SODIUM [Concomitant]
     Indication: THROMBOSIS
     Dosage: UNK
     Dates: start: 20120703, end: 20120714
  17. POTASSIUM CHLORIDE [Concomitant]
     Indication: BLOOD POTASSIUM DECREASED
     Dosage: UNK
     Dates: start: 20120703, end: 20120706
  18. SODIUM CHLORIDE [Concomitant]
     Indication: DEHYDRATION
     Dosage: UNK
     Dates: start: 20120719, end: 20120721
  19. MOMETASONE [Concomitant]
     Indication: NASAL CONGESTION
     Dosage: UNK
     Dates: start: 20120714, end: 20120725
  20. ASCORBIC ACID [Concomitant]
     Dosage: UNK
     Dates: start: 20111118
  21. ENOXAPARIN [Concomitant]
     Dosage: UNK
     Dates: start: 20120129, end: 20120129
  22. GRANISETRON [Concomitant]
     Dosage: UNK
     Dates: start: 20111205, end: 20120515
  23. RANITIDINE [Concomitant]
     Dosage: UNK
     Dates: start: 20111205, end: 20120515
  24. DIPHENHYDRAMINE [Concomitant]
     Dosage: UNK
     Dates: start: 20111205, end: 20120515
  25. ACETAMINOPHEN [Concomitant]
     Dosage: UNK
     Dates: start: 20111205, end: 20120515
  26. VITAMIN D [Concomitant]
     Dosage: UNK
     Dates: start: 20111128
  27. GLUCOSAMINE SULFATE [Concomitant]
     Dosage: UNK
  28. OXYCOCET [Concomitant]
     Indication: PAIN IN EXTREMITY
     Dates: start: 20120703, end: 20120704
  29. SOLU-MEDROL [Concomitant]
     Indication: HYPOTENSION
     Dates: start: 20111216, end: 20111216
  30. INSULIN [Concomitant]
     Indication: DIABETES MELLITUS
  31. SAXAGLIPTIN [Concomitant]
     Indication: DIABETES MELLITUS
  32. PIOGLITAZONE HYDROCHLORIDE [Concomitant]
     Indication: DIABETES MELLITUS
     Dates: start: 20120625
  33. METFORMIN [Concomitant]
     Indication: DIABETES MELLITUS
  34. HUMULIN [Concomitant]
     Indication: DIABETES MELLITUS
     Dosage: UNK
     Dates: start: 20120109, end: 20120109
  35. ALEVE [Concomitant]
     Indication: PAIN IN EXTREMITY
     Dates: start: 20111108
  36. CRESTOR [Concomitant]
     Indication: HYPERCHOLESTEROLAEMIA
     Dosage: UNK
  37. FENOFIBRATE [Concomitant]
     Indication: HYPERCHOLESTEROLAEMIA
     Dosage: UNK
     Dates: start: 20120725
  38. FLUDROCORTISONE [Concomitant]
     Indication: PYREXIA
     Dates: start: 20120109, end: 20120109
  39. HYDROCORTISONE [Concomitant]
     Indication: PYREXIA
     Dosage: UNK
     Dates: start: 20120109, end: 20120109
  40. CLAVULIN [Concomitant]
     Indication: CELLULITIS
     Dosage: UNK

REACTIONS (10)
  - Cytotoxic cardiomyopathy [Not Recovered/Not Resolved]
  - Acute myocardial infarction [Not Recovered/Not Resolved]
  - Chills [Recovered/Resolved]
  - Addison^s disease [Recovered/Resolved]
  - Febrile neutropenia [Recovered/Resolved]
  - White blood cell count decreased [Recovered/Resolved]
  - Hypotension [Recovered/Resolved]
  - Cellulitis [Recovered/Resolved]
  - Constipation [Recovered/Resolved]
  - Pyrexia [Recovered/Resolved]
